FAERS Safety Report 21342041 (Version 3)
Quarter: 2023Q2

REPORT INFORMATION
  Report Type: Spontaneous
  Country: DE (occurrence: DE)
  Receive Date: 20220916
  Receipt Date: 20230412
  Transmission Date: 20230722
  Serious: Yes (Hospitalization)
  Sender: FDA-Public Use
  Company Number: DE-NOVARTISPH-NVSC2022DE205506

PATIENT
  Age: 50 Year
  Sex: Male
  Weight: 105 kg

DRUGS (27)
  1. HYDROCHLOROTHIAZIDE\RAMIPRIL [Suspect]
     Active Substance: HYDROCHLOROTHIAZIDE\RAMIPRIL
     Indication: Product used for unknown indication
     Dosage: UNK, QD (25|5 MG (1-0-0-0))
     Route: 048
  2. RAMIPRIL [Suspect]
     Active Substance: RAMIPRIL
     Indication: Product used for unknown indication
     Dosage: 5 MG, BID (1-0-1-0)
     Route: 048
  3. RAMIPRIL [Suspect]
     Active Substance: RAMIPRIL
     Dosage: 5 MG, Q12H
     Route: 048
  4. METFORMIN HYDROCHLORIDE [Suspect]
     Active Substance: METFORMIN HYDROCHLORIDE
     Indication: Product used for unknown indication
     Dosage: 1000 MG, Q12H
     Route: 048
  5. IBUPROFEN [Suspect]
     Active Substance: IBUPROFEN
     Indication: Product used for unknown indication
     Dosage: 800 MG, BEDARF
     Route: 048
  6. IBUPROFEN [Suspect]
     Active Substance: IBUPROFEN
     Dosage: 800 MG (AS NEEDED)
     Route: 048
  7. IBUPROFEN [Suspect]
     Active Substance: IBUPROFEN
     Dosage: 800 MG
     Route: 048
  8. METFORMIN [Suspect]
     Active Substance: METFORMIN HYDROCHLORIDE
     Indication: Product used for unknown indication
     Dosage: 1000 MG, BID (1-0-1-0)
     Route: 048
  9. PROMETHAZINE [Suspect]
     Active Substance: PROMETHAZINE HYDROCHLORIDE
     Indication: Product used for unknown indication
     Dosage: 20 MILLIGRAM PER MILLILITRE (BEDARF, TROPFEN) NEED, DROPS
     Route: 048
  10. PROMETHAZINE [Suspect]
     Active Substance: PROMETHAZINE HYDROCHLORIDE
     Dosage: UNK, Q12H
     Route: 048
  11. PROMETHAZINE [Suspect]
     Active Substance: PROMETHAZINE HYDROCHLORIDE
     Dosage: 1 UNK, PRN
     Route: 048
  12. LERCANIDIPINE HYDROCHLORIDE [Suspect]
     Active Substance: LERCANIDIPINE HYDROCHLORIDE
     Indication: Product used for unknown indication
     Dosage: 10 MG, Q12H
     Route: 065
  13. TAVOR (LORAZEPAM) [Suspect]
     Active Substance: LORAZEPAM
     Indication: Product used for unknown indication
     Dosage: 1 MG, TID (1-1-1-0) (ORODISPERSIBLE TABLET)
     Route: 048
  14. TAVOR (LORAZEPAM) [Suspect]
     Active Substance: LORAZEPAM
     Dosage: 1 MG, Q8H
     Route: 048
  15. LERCANIDIPINE [Suspect]
     Active Substance: LERCANIDIPINE
     Indication: Product used for unknown indication
     Dosage: 10 MG, BID (1-0-1-0)
     Route: 048
  16. LERCANIDIPINE [Suspect]
     Active Substance: LERCANIDIPINE
     Dosage: 1-0-1-0
     Route: 048
  17. NITROLINGUAL [Concomitant]
     Active Substance: NITROGLYCERIN
     Indication: Product used for unknown indication
     Dosage: NEED, SOLUTION/SPRAY
     Route: 060
  18. NITROLINGUAL [Concomitant]
     Active Substance: NITROGLYCERIN
     Dosage: UNK (SPRAY (UNSPECIFIED))
     Route: 065
  19. SIMVASTATIN [Concomitant]
     Active Substance: SIMVASTATIN
     Indication: Product used for unknown indication
     Dosage: 40 MG, Q24H (0-0-1-0)
     Route: 048
  20. SIMVASTATIN [Concomitant]
     Active Substance: SIMVASTATIN
     Dosage: UNK
     Route: 065
  21. DIHYDRALAZINE [Concomitant]
     Active Substance: DIHYDRALAZINE
     Indication: Product used for unknown indication
     Dosage: 25 MG, BID  (1-0-1-0)
     Route: 048
  22. DIHYDRALAZINE [Concomitant]
     Active Substance: DIHYDRALAZINE
     Dosage: UNK
     Route: 065
  23. MIRTAZAPINE [Concomitant]
     Active Substance: MIRTAZAPINE
     Indication: Product used for unknown indication
     Dosage: 15 MG (0-0-0-0.5)
     Route: 048
  24. METOPROLOL [Concomitant]
     Active Substance: METOPROLOL
     Indication: Product used for unknown indication
     Dosage: 95 MG, BID  (1-0-1-0)
     Route: 048
  25. METOPROLOL [Concomitant]
     Active Substance: METOPROLOL
     Dosage: UNK
     Route: 065
  26. METOPROLOL [Concomitant]
     Active Substance: METOPROLOL
     Dosage: 1-0-1-0, RETARD
     Route: 048
  27. ASPIRIN [Concomitant]
     Active Substance: ASPIRIN
     Indication: Product used for unknown indication
     Dosage: 100 MG, QD, (0-1-0-0)
     Route: 048

REACTIONS (4)
  - General physical health deterioration [Not Recovered/Not Resolved]
  - Localised infection [Not Recovered/Not Resolved]
  - Renal impairment [Not Recovered/Not Resolved]
  - Product prescribing error [Unknown]
